FAERS Safety Report 18272880 (Version 1)
Quarter: 2020Q3

REPORT INFORMATION
  Report Type: Spontaneous
  Country: US (occurrence: US)
  Receive Date: 20200903
  Receipt Date: 20200903
  Transmission Date: 20201103
  Serious: No
  Sender: FDA-Public Use
  Company Number: None

PATIENT
  Age: 39 Year
  Sex: Female

DRUGS (2)
  1. MA XING SHI GAN DECOCTION (CHINESE HERBS) [Suspect]
     Active Substance: HERBALS
     Indication: COVID-19
     Dates: start: 2020
  2. XIAO CHAI HU DECOCTION [Suspect]
     Active Substance: HERBALS
     Indication: COVID-19
     Dates: start: 2020

REACTIONS (1)
  - Product use in unapproved indication [None]
